FAERS Safety Report 8812254 (Version 2)
Quarter: 2012Q4

REPORT INFORMATION
  Report Type: 
  Country: US (occurrence: US)
  Receive Date: 20120927
  Receipt Date: 20121226
  Transmission Date: 20130627
  Serious: Yes (Hospitalization)
  Sender: FDA-Public Use
  Company Number: US-MPIJNJ-2012-06500

PATIENT
  Age: 61 Year
  Sex: Male
  Weight: 68.1 kg

DRUGS (18)
  1. VELCADE [Suspect]
     Indication: LYMPHOMA
     Dosage: 3.0 mg, Cyclic
     Route: 042
     Dates: start: 20120906, end: 20120913
  2. RITUXAN [Suspect]
     Indication: LYMPHOMA
     Dosage: 700 mg, Cyclic
     Route: 042
     Dates: start: 20120906, end: 20120906
  3. DOXORUBICIN [Suspect]
     Indication: LYMPHOMA
     Dosage: 95 mg, Cyclic
     Route: 042
     Dates: start: 20120906, end: 20120906
  4. PREDNISONE [Suspect]
     Indication: LYMPHOMA
     Dosage: 100 mg, Cyclic
     Route: 048
     Dates: start: 20120906, end: 20120910
  5. VINCRISTINE [Suspect]
     Indication: LYMPHOMA
     Dosage: 1.5 mg, Cyclic
     Route: 042
     Dates: start: 20120906, end: 20120906
  6. CYCLOPHOSPHAMIDE [Suspect]
     Indication: LYMPHOMA
     Dosage: 1420 mg, Cyclic
     Route: 042
     Dates: start: 20120906, end: 20120906
  7. ACYCLOVIR                          /00587301/ [Concomitant]
     Indication: PRODUCT USED FOR UNKNOWN INDICATION
     Dosage: 400 mg, bid
     Route: 048
  8. ALLOPURINOL [Concomitant]
     Indication: PRODUCT USED FOR UNKNOWN INDICATION
     Dosage: 300 mg, qd
     Route: 048
  9. DOCUSATE [Concomitant]
     Indication: PRODUCT USED FOR UNKNOWN INDICATION
     Dosage: UNK, qd
     Route: 048
  10. ERGOCALCIFEROL [Concomitant]
     Indication: PRODUCT USED FOR UNKNOWN INDICATION
     Dosage: 1.25 mg, 2/week
     Route: 048
  11. LANSOPRAZOLE [Concomitant]
     Indication: PRODUCT USED FOR UNKNOWN INDICATION
     Dosage: UNK, qd
     Route: 048
  12. LORAZEPAM [Concomitant]
     Indication: PRODUCT USED FOR UNKNOWN INDICATION
     Dosage: 0.5 mg, tid
     Route: 048
  13. MULTIVITAMIN                       /00831701/ [Concomitant]
     Indication: PRODUCT USED FOR UNKNOWN INDICATION
     Dosage: UNK, qd
     Route: 048
  14. OMEPRAZOLE [Concomitant]
     Indication: PRODUCT USED FOR UNKNOWN INDICATION
     Dosage: 20 mg, qd
     Route: 048
  15. ONDANSETRON [Concomitant]
     Indication: PRODUCT USED FOR UNKNOWN INDICATION
     Dosage: 8 mg, bid
     Route: 048
  16. PROCHLORPERAZINE [Concomitant]
     Indication: PRODUCT USED FOR UNKNOWN INDICATION
     Dosage: 10 mg, tid
     Route: 048
  17. SENNA                              /00142201/ [Concomitant]
     Indication: PRODUCT USED FOR UNKNOWN INDICATION
     Dosage: 8.6 mg, UNK
     Route: 048
  18. SULFAMETHOXAZOLE AND TRIMETHOPRIM [Concomitant]
     Indication: PRODUCT USED FOR UNKNOWN INDICATION
     Dosage: UNK, 3/week
     Route: 048

REACTIONS (2)
  - Sinus tachycardia [Recovered/Resolved]
  - Pyrexia [Recovered/Resolved]
